FAERS Safety Report 19508269 (Version 1)
Quarter: 2021Q3

REPORT INFORMATION
  Report Type: Spontaneous
  Country: NL (occurrence: NL)
  Receive Date: 20210708
  Receipt Date: 20210708
  Transmission Date: 20211014
  Serious: Yes (Other)
  Sender: FDA-Public Use
  Company Number: NVSC2020NL175517

PATIENT
  Age: 5 Year
  Sex: Female

DRUGS (3)
  1. INDOMETHACIN. [Suspect]
     Active Substance: INDOMETHACIN
     Dosage: 2.02 MG/KG, QD
     Route: 065
  2. INDOMETHACIN. [Suspect]
     Active Substance: INDOMETHACIN
     Indication: END STAGE RENAL DISEASE
     Dosage: 1.01 MG/KG, QD INITIAL DOSE
     Route: 065
  3. ENALAPRIL [Suspect]
     Active Substance: ENALAPRIL
     Indication: END STAGE RENAL DISEASE
     Dosage: 0.08 MG/KG, QD
     Route: 065

REACTIONS (3)
  - Transaminases increased [Unknown]
  - Hypotension [Unknown]
  - Drug ineffective for unapproved indication [Unknown]
